FAERS Safety Report 14693808 (Version 9)
Quarter: 2018Q2

REPORT INFORMATION
  Report Type: Report from Study
  Country: None (occurrence: TR)
  Receive Date: 20180329
  Receipt Date: 20180614
  Transmission Date: 20180711
  Serious: Yes (Hospitalization)
  Sender: FDA-Public Use
  Company Number: TR-ABBVIE-18K-161-2301659-00

PATIENT
  Age: 67 Year
  Sex: Female
  Weight: 72 kg

DRUGS (12)
  1. DUODOPA [Suspect]
     Active Substance: CARBIDOPA\LEVODOPA
     Dosage: MORNING: 3.6 ML?CONTINUES: 0.9 ML?EXTRA: 1.0 ML
     Route: 050
     Dates: start: 20180329, end: 2018
  2. DUODOPA [Suspect]
     Active Substance: CARBIDOPA\LEVODOPA
     Dosage: MORNING: 3.5 ML?CONTINUOUS: 0.9 ML?EXTRA: 1.0 ML
     Route: 050
     Dates: start: 20180331, end: 201804
  3. DUODOPA [Suspect]
     Active Substance: CARBIDOPA\LEVODOPA
     Dosage: MORNING: 3.4 ML?CONTINUOUS: 0.8 ML?EXTRA: 1.0 ML
     Route: 050
     Dates: start: 20180405, end: 20180417
  4. DUODOPA [Suspect]
     Active Substance: CARBIDOPA\LEVODOPA
     Dosage: MORNING: 3.3 ML?CONTINOUS: 0.8 ML?EXTRA: 0.5 ML
     Route: 050
     Dates: start: 20180417, end: 20180511
  5. PK MERZ [Concomitant]
     Active Substance: AMANTADINE SULFATE
     Indication: PARKINSON^S DISEASE
     Route: 048
  6. DUODOPA [Suspect]
     Active Substance: CARBIDOPA\LEVODOPA
     Dosage: MORNING: 3.4 ML?CONTINOUS: 0.9 ML?EXTRA: 0.0 ML
     Route: 050
     Dates: start: 20180327, end: 20180329
  7. SPASMEX [Concomitant]
     Indication: URINARY INCONTINENCE
     Route: 048
     Dates: start: 2016
  8. CITOLES [Concomitant]
     Indication: RELAXATION THERAPY
     Route: 048
  9. TEBOKAN [Suspect]
     Active Substance: GINKGO
     Indication: PRODUCT USED FOR UNKNOWN INDICATION
     Route: 065
     Dates: start: 201805, end: 2018
  10. DUODOPA [Suspect]
     Active Substance: CARBIDOPA\LEVODOPA
     Indication: PARKINSON^S DISEASE
     Dosage: MORNING: 3.4 ML?CONTINOUS: 0.8 ML?EXTRA: 0.0 ML
     Route: 050
     Dates: start: 20180319, end: 201803
  11. DUODOPA [Suspect]
     Active Substance: CARBIDOPA\LEVODOPA
     Dosage: MORNING: 3.4 ML?CONTINOUS: 0.8 ML?EXTRA: 0.0 ML
     Route: 050
     Dates: start: 20180322, end: 20180327
  12. DUODOPA [Suspect]
     Active Substance: CARBIDOPA\LEVODOPA
     Dosage: MORNING: 3.40 ML?CONTINOUS: 0.7 ML?EXTRA: 1.00 ML
     Route: 050
     Dates: start: 20180511

REACTIONS (13)
  - Lung infiltration [Recovered/Resolved]
  - Erythema [Recovered/Resolved]
  - Bradykinesia [Recovered/Resolved]
  - Dyskinesia [Recovered/Resolved]
  - Fall [Recovered/Resolved]
  - Bradykinesia [Not Recovered/Not Resolved]
  - Balance disorder [Not Recovered/Not Resolved]
  - Complication associated with device [Unknown]
  - Urinary tract infection [Not Recovered/Not Resolved]
  - Fall [Not Recovered/Not Resolved]
  - Dyskinesia [Recovered/Resolved]
  - Device occlusion [Recovered/Resolved]
  - Peripheral swelling [Recovered/Resolved]

NARRATIVE: CASE EVENT DATE: 2018
